FAERS Safety Report 20702703 (Version 1)
Quarter: 2022Q2

REPORT INFORMATION
  Report Type: Spontaneous
  Country: MY (occurrence: MY)
  Receive Date: 20220412
  Receipt Date: 20220412
  Transmission Date: 20220721
  Serious: Yes (Disabling)
  Sender: FDA-Public Use
  Company Number: MY-DSJP-DSJ-2022-112399

PATIENT
  Age: 72 Year
  Sex: Male

DRUGS (1)
  1. EDOXABAN [Suspect]
     Active Substance: EDOXABAN
     Indication: Product used for unknown indication
     Dosage: 60 MG, DAILY
     Route: 048

REACTIONS (2)
  - Embolic stroke [Unknown]
  - Drug ineffective [Unknown]
